FAERS Safety Report 12061969 (Version 1)
Quarter: 2016Q1

REPORT INFORMATION
  Report Type: Spontaneous
  Country: DE (occurrence: DE)
  Receive Date: 20160210
  Receipt Date: 20160210
  Transmission Date: 20160526
  Serious: Yes (Hospitalization)
  Sender: FDA-Public Use
  Company Number: DE-TEVA-631350GER

PATIENT
  Age: 79 Year
  Sex: Male

DRUGS (2)
  1. CEFTRIAXON [Concomitant]
     Active Substance: CEFTRIAXONE
     Dosage: 2 GRAM DAILY;
     Route: 042
  2. AMPICILLIN [Suspect]
     Active Substance: AMPICILLIN
     Indication: URINARY TRACT INFECTION
     Dosage: 6 GRAM DAILY;
     Route: 042
     Dates: start: 20160110

REACTIONS (6)
  - Aggression [Recovered/Resolved]
  - Disorientation [Recovered/Resolved]
  - Hallucination [Recovered/Resolved]
  - Confusional state [Recovered/Resolved]
  - Speech disorder [Recovered/Resolved]
  - Anxiety [Recovered/Resolved]

NARRATIVE: CASE EVENT DATE: 20160110
